FAERS Safety Report 7915947-9 (Version None)
Quarter: 2011Q4

REPORT INFORMATION
  Report Type: 
  Country: None (occurrence: None)
  Receive Date: 20111115
  Receipt Date: 20111114
  Transmission Date: 20120403
  Serious: Yes (Hospitalization)
  Sender: FDA-Public Use
  Company Number: US-MERCK-1011USA01577

PATIENT
  Age: 55 Year
  Sex: Female
  Weight: 67 kg

DRUGS (5)
  1. FOSAMAX [Suspect]
     Indication: OSTEOPENIA
     Route: 048
     Dates: start: 20061201, end: 20100301
  2. FOSAMAX [Suspect]
     Indication: OSTEOPOROSIS
     Route: 048
     Dates: start: 20061201, end: 20100301
  3. FOSAMAX PLUS D [Suspect]
     Indication: OSTEOPOROSIS
     Route: 048
     Dates: start: 20061201, end: 20100301
  4. VITAMINS (UNSPECIFIED) [Concomitant]
     Route: 065
  5. FOSAMAX PLUS D [Suspect]
     Indication: OSTEOPENIA
     Route: 048
     Dates: start: 20061201, end: 20100301

REACTIONS (13)
  - OVARIAN CYST [None]
  - MUSCLE SPASMS [None]
  - FALL [None]
  - SKIN DISORDER [None]
  - VULVOVAGINAL DRYNESS [None]
  - COLON ADENOMA [None]
  - HUMERUS FRACTURE [None]
  - COLONIC POLYP [None]
  - POLYP COLORECTAL [None]
  - ALCOHOL ABUSE [None]
  - FEMORAL NECK FRACTURE [None]
  - BURSITIS [None]
  - ARTHRITIS [None]
